FAERS Safety Report 20925816 (Version 1)
Quarter: 2022Q2

REPORT INFORMATION
  Report Type: Spontaneous
  Country: ES (occurrence: ES)
  Receive Date: 20220607
  Receipt Date: 20220607
  Transmission Date: 20220721
  Serious: Yes (Hospitalization, Other)
  Sender: FDA-Public Use
  Company Number: None

PATIENT
  Age: 39 Year
  Sex: Male

DRUGS (4)
  1. TOFACITINIB CITRATE [Suspect]
     Active Substance: TOFACITINIB CITRATE
     Indication: Colitis ulcerative
     Dosage: 20 MG, 1X/DAY
     Route: 048
     Dates: start: 20210301, end: 20220423
  2. GONAL-F [Concomitant]
     Active Substance: FOLLITROPIN
     Indication: Gynaecomastia
     Dosage: 1800 IU, MONTHLY
     Route: 058
     Dates: start: 201909
  3. MESALAMINE [Concomitant]
     Active Substance: MESALAMINE
     Indication: Colitis ulcerative
     Dosage: 1 G, 1X/DAY
     Route: 054
     Dates: start: 202002
  4. CHORIOGONADOTROPIN ALFA [Concomitant]
     Active Substance: CHORIOGONADOTROPIN ALFA
     Indication: Gynaecomastia
     Dosage: 500 MG, MONTHLY
     Route: 058
     Dates: start: 201909

REACTIONS (2)
  - Acute coronary syndrome [Recovered/Resolved with Sequelae]
  - Off label use [Unknown]

NARRATIVE: CASE EVENT DATE: 20210301
